FAERS Safety Report 6153341-4 (Version None)
Quarter: 2009Q2

REPORT INFORMATION
  Report Type: 
  Country: None (occurrence: None)
  Receive Date: 20090413
  Receipt Date: 20090409
  Transmission Date: 20091009
  Serious: Yes (Other)
  Sender: FDA-Public Use
  Company Number: US-B.I. PHARMACEUTICALS,INC./RIDGEFIELD-2009-BP-03108BP

PATIENT
  Sex: Male

DRUGS (2)
  1. ATROVENT HFA [Suspect]
     Indication: CHRONIC OBSTRUCTIVE PULMONARY DISEASE
     Dosage: 12PUF
     Route: 055
     Dates: start: 20010401
  2. NORVASC [Concomitant]
     Indication: HYPERTENSION
     Dosage: 5MG
     Route: 048
     Dates: start: 20000101

REACTIONS (12)
  - CHEST DISCOMFORT [None]
  - COORDINATION ABNORMAL [None]
  - DIZZINESS [None]
  - DRUG INEFFECTIVE [None]
  - DYSGEUSIA [None]
  - DYSPNOEA [None]
  - FEELING ABNORMAL [None]
  - GLOSSODYNIA [None]
  - INSOMNIA [None]
  - NASAL CONGESTION [None]
  - PALPITATIONS [None]
  - TONGUE COATED [None]
